FAERS Safety Report 13125537 (Version 1)
Quarter: 2017Q1

REPORT INFORMATION
  Report Type: Spontaneous
  Country: US (occurrence: US)
  Receive Date: 20170117
  Receipt Date: 20170117
  Transmission Date: 20170428
  Serious: Yes (Other)
  Sender: FDA-Public Use
  Company Number: None

PATIENT
  Age: 65 Year
  Sex: Male
  Weight: 57.6 kg

DRUGS (2)
  1. METOPORIL ER 25 MG TAB ACT [Suspect]
     Active Substance: METOPROLOL
     Indication: ISCHAEMIC HEART DISEASE PROPHYLAXIS
     Dosage: ?          QUANTITY:1 TABLET(S);?
     Route: 048
     Dates: start: 20120115, end: 20170115
  2. METOPORIL ER 25 MG TAB ACT [Suspect]
     Active Substance: METOPROLOL
     Indication: HYPERTENSION
     Dosage: ?          QUANTITY:1 TABLET(S);?
     Route: 048
     Dates: start: 20120115, end: 20170115

REACTIONS (5)
  - Feeling cold [None]
  - Product quality issue [None]
  - Tremor [None]
  - Nausea [None]
  - Headache [None]

NARRATIVE: CASE EVENT DATE: 20170113
